FAERS Safety Report 5252903-6 (Version None)
Quarter: 2007Q1

REPORT INFORMATION
  Report Type: 
  Country: None (occurrence: None)
  Receive Date: 20070301
  Receipt Date: 20061010
  Transmission Date: 20070707
  Serious: Yes (Other)
  Sender: FDA-Public Use
  Company Number: DE-ELI_LILLY_AND_COMPANY-DE_050917034

PATIENT
  Age: 37 Year
  Sex: Female

DRUGS (12)
  1. DIAZEPAM [Concomitant]
  2. ZYPREXA [Suspect]
     Indication: DELUSIONAL DISORDER, PERSECUTORY TYPE
     Dosage: 5 MG, 2/D
     Route: 048
     Dates: start: 20050823, end: 20050823
  3. ZYPREXA [Suspect]
     Dosage: 5 MG, DAILY (1/D)
     Route: 048
     Dates: start: 20050825, end: 20050828
  4. ZYPREXA [Suspect]
     Dosage: 10 MG, DAILY (1/D)
     Route: 048
     Dates: start: 20050824, end: 20050824
  5. ZYPREXA [Suspect]
     Dosage: 7.5 MG, DAILY (1/D)
     Route: 048
     Dates: start: 20050829, end: 20050829
  6. ZYPREXA [Suspect]
     Dosage: 10 MG, DAILY (1/D)
     Route: 048
     Dates: start: 20050830, end: 20050909
  7. ZYPREXA [Suspect]
     Dosage: 15 MG, DAILY (1/D)
     Route: 048
     Dates: start: 20050910, end: 20050913
  8. ZYPREXA [Suspect]
     Dosage: 15 MG, DAILY (1/D)
     Route: 048
     Dates: start: 20050914, end: 20050916
  9. ZYPREXA [Suspect]
     Dosage: 5 MG, 4/D
     Route: 048
     Dates: start: 20050917, end: 20051003
  10. HALDOL [Concomitant]
     Dosage: 1.6 MG, UNKNOWN
  11. TAVOR [Concomitant]
     Dosage: UNK, UNKNOWN
  12. CLOZAPINE [Concomitant]
     Dosage: UNK, UNKNOWN

REACTIONS (5)
  - CAESAREAN SECTION [None]
  - DELUSIONAL DISORDER, PERSECUTORY TYPE [None]
  - DRUG EXPOSURE DURING PREGNANCY [None]
  - DRUG INEFFECTIVE [None]
  - EXTRAPYRAMIDAL DISORDER [None]
